FAERS Safety Report 14231707 (Version 6)
Quarter: 2018Q1

REPORT INFORMATION
  Report Type: Report from Study
  Country: None (occurrence: JP)
  Receive Date: 20171128
  Receipt Date: 20180208
  Transmission Date: 20180508
  Serious: Yes (Death, Life-Threatening)
  Sender: FDA-Public Use
  Company Number: JP-ABBVIE-17P-087-2170747-00

PATIENT
  Age: 86 Year
  Sex: Male
  Weight: 49.4 kg

DRUGS (27)
  1. POLYMIXIN B SULFATE [Concomitant]
     Indication: PROPHYLAXIS
     Route: 048
     Dates: start: 20170927, end: 20171208
  2. MAGNESIUM OXIDE. [Concomitant]
     Active Substance: MAGNESIUM OXIDE
     Indication: CONSTIPATION
     Route: 048
     Dates: start: 20170927, end: 20171208
  3. OTSUKA NORMAL SALINE [Concomitant]
     Route: 041
     Dates: start: 20171116
  4. AZUNOL [Concomitant]
     Active Substance: SODIUM GUALENATE
     Indication: DERMATITIS
     Route: 003
     Dates: start: 20171123, end: 20171206
  5. CYTARABINE. [Suspect]
     Active Substance: CYTARABINE
     Indication: ACUTE MYELOID LEUKAEMIA
     Dosage: DAILY ON DAYS 1  10 OF EACH 28 DAY CYCLE
     Route: 058
     Dates: start: 20171012, end: 20171118
  6. FEBUXOSTAT. [Concomitant]
     Active Substance: FEBUXOSTAT
     Indication: HYPERURICAEMIA
     Route: 048
     Dates: start: 20170906, end: 20171208
  7. ALOSENN [Concomitant]
     Active Substance: SENNA LEAF
     Indication: CONSTIPATION
     Route: 048
     Dates: start: 20171010, end: 20171214
  8. CALONAL [Concomitant]
     Active Substance: ACETAMINOPHEN
     Indication: PAIN
     Route: 048
     Dates: start: 20171029, end: 20171206
  9. VENETOCLAX. [Suspect]
     Active Substance: VENETOCLAX
     Route: 048
     Dates: start: 20171013, end: 20171013
  10. VENETOCLAX. [Suspect]
     Active Substance: VENETOCLAX
     Route: 048
     Dates: start: 20171014, end: 20171014
  11. VENETOCLAX. [Suspect]
     Active Substance: VENETOCLAX
     Indication: ACUTE MYELOID LEUKAEMIA
     Route: 048
     Dates: start: 20171012, end: 20171012
  12. VENETOCLAX. [Suspect]
     Active Substance: VENETOCLAX
     Route: 048
     Dates: start: 20171015, end: 20171117
  13. TAKECAB [Concomitant]
     Active Substance: VONOPRAZAN FUMURATE
     Indication: GASTRITIS PROPHYLAXIS
     Route: 048
     Dates: start: 20171013, end: 20171208
  14. FUROSEMID [Concomitant]
     Active Substance: FUROSEMIDE
     Indication: CHRONIC KIDNEY DISEASE
     Route: 048
     Dates: start: 20170906, end: 20171208
  15. LUNESTA [Concomitant]
     Active Substance: ESZOPICLONE
     Indication: INSOMNIA
     Route: 048
     Dates: start: 20170906, end: 20171208
  16. CALONAL [Concomitant]
     Active Substance: ACETAMINOPHEN
     Indication: PYREXIA
  17. OTSUKA NORMAL SALINE [Concomitant]
     Indication: FEBRILE NEUTROPENIA
     Route: 041
     Dates: start: 20171029, end: 20171203
  18. VENETOCLAX. [Suspect]
     Active Substance: VENETOCLAX
     Route: 048
     Dates: start: 20171118, end: 20171121
  19. SPIRONOLACTONE. [Concomitant]
     Active Substance: SPIRONOLACTONE
     Indication: CHRONIC KIDNEY DISEASE
     Route: 048
     Dates: start: 20170906, end: 20171208
  20. FANGUARD [Concomitant]
     Indication: FEBRILE NEUTROPENIA
     Route: 041
     Dates: start: 20171116
  21. DALTEPARIN NA [Concomitant]
     Indication: ANGINA PECTORIS
     Route: 042
     Dates: start: 20171011
  22. AMLODIPINE [Concomitant]
     Active Substance: AMLODIPINE BESYLATE
     Indication: CHRONIC KIDNEY DISEASE
     Route: 048
     Dates: start: 20170906, end: 20171208
  23. MEROPENEM. [Concomitant]
     Active Substance: MEROPENEM
     Indication: FEBRILE NEUTROPENIA
     Route: 041
     Dates: start: 20171110
  24. TAKECAB [Concomitant]
     Active Substance: VONOPRAZAN FUMURATE
     Indication: GASTRITIS PROPHYLAXIS
  25. MEROPENEM. [Concomitant]
     Active Substance: MEROPENEM
     Indication: PNEUMONIA
  26. PASTARON [Concomitant]
     Active Substance: UREA
     Indication: XEROSIS
     Route: 003
     Dates: start: 20171105
  27. ACOALAN [Concomitant]
     Indication: PLATELET COUNT DECREASED
     Route: 041
     Dates: start: 20171110, end: 20171124

REACTIONS (2)
  - Cardiac failure congestive [Recovered/Resolved]
  - Pneumonia [Fatal]

NARRATIVE: CASE EVENT DATE: 20171121
